FAERS Safety Report 7243107-6 (Version None)
Quarter: 2011Q1

REPORT INFORMATION
  Report Type: 
  Country: None (occurrence: None)
  Receive Date: 20110125
  Receipt Date: 20110107
  Transmission Date: 20110831
  Serious: Yes (Other)
  Sender: FDA-Public Use
  Company Number: GB-JNJFOC-20101000830

PATIENT
  Sex: Male

DRUGS (4)
  1. TRAMADOL HCL [Concomitant]
     Indication: PRODUCT USED FOR UNKNOWN INDICATION
     Dosage: ONE, FOUR TIMES PER DAY AS NECESSARY
     Route: 065
  2. CLONAZEPAM [Concomitant]
     Indication: SCHIZOPHRENIA
     Dosage: ONE, THREE/FOUR TIMES PER DAY AS NECESSARY
     Route: 065
  3. DAKTACORT [Suspect]
     Indication: FUNGAL INFECTION
     Route: 061
  4. DAKTACORT [Suspect]
     Indication: DERMATITIS
     Route: 061

REACTIONS (5)
  - SCAR [None]
  - HYPERSENSITIVITY [None]
  - DRUG ADMINISTERED AT INAPPROPRIATE SITE [None]
  - FACE INJURY [None]
  - BURNING SENSATION [None]
